FAERS Safety Report 10204620 (Version 3)
Quarter: 2014Q3

REPORT INFORMATION
  Report Type: Report from Study
  Country: US (occurrence: US)
  Receive Date: 20140529
  Receipt Date: 20140708
  Transmission Date: 20150326
  Serious: Yes (Death, Other)
  Sender: FDA-Public Use
  Company Number: US-MPIJNJ-2013MPI000984

PATIENT
  Age: 84 Year
  Sex: Male
  Weight: 115.4 kg

DRUGS (1)
  1. VELCADE [Suspect]
     Active Substance: BORTEZOMIB
     Indication: PLASMA CELL MYELOMA
     Dosage: 3.1 MG, ONCE
     Route: 058
     Dates: start: 20130510, end: 20130510

REACTIONS (7)
  - Multi-organ failure [Fatal]
  - Failure to thrive [Unknown]
  - Sepsis [Unknown]
  - Respiratory failure [Unknown]
  - Pyrexia [Unknown]
  - Cough [Unknown]
  - Pneumonia [Unknown]

NARRATIVE: CASE EVENT DATE: 20130513
